FAERS Safety Report 14336675 (Version 1)
Quarter: 2017Q4

REPORT INFORMATION
  Report Type: Spontaneous
  Country: IT (occurrence: IT)
  Receive Date: 20171229
  Receipt Date: 20171229
  Transmission Date: 20180321
  Serious: Yes (Other)
  Sender: FDA-Public Use
  Company Number: IT-CIPLA LTD.-2017IT27584

PATIENT

DRUGS (3)
  1. SERTRALINE [Suspect]
     Active Substance: SERTRALINE HYDROCHLORIDE
     Dosage: UNK
     Route: 048
  2. TAMSULOSINA ALMUS 0,4 MG CAPSULE RIGIDE A RILASCIO MODIFICATO [Concomitant]
     Dosage: UNK
     Route: 048
  3. AVODART 0,5 MG CAPSULE MOLLI [Concomitant]
     Dosage: UNK
     Route: 048

REACTIONS (1)
  - Poisoning [Recovering/Resolving]

NARRATIVE: CASE EVENT DATE: 20170817
